FAERS Safety Report 4525240-2 (Version None)
Quarter: 2004Q4

REPORT INFORMATION
  Report Type: 
  Country: None (occurrence: None)
  Receive Date: 20041213
  Receipt Date: 19960426
  Transmission Date: 20050328
  Serious: Yes (Disabling)
  Sender: FDA-Public Use
  Company Number: DE-ROCHE-62310

PATIENT
  Age: 65 Year
  Sex: Male
  Weight: 85 kg

DRUGS (7)
  1. ROACCUTAN [Suspect]
     Route: 048
     Dates: start: 19900115, end: 19960515
  2. ROACCUTAN [Suspect]
     Route: 048
     Dates: start: 19970715
  3. ROACCUTAN [Suspect]
     Route: 048
     Dates: end: 20041115
  4. ISOKET [Concomitant]
     Indication: CORONARY ARTERY DISEASE
     Route: 048
  5. ASPIRIN [Concomitant]
     Indication: CORONARY ARTERY DISEASE
     Route: 048
  6. ACCUZIDE [Concomitant]
     Indication: CORONARY ARTERY DISEASE
     Route: 048
  7. TIGASON [Concomitant]
     Dosage: PATIENT GIVEN 25MG DEC1982 - OCT1983, THEN GIVEN 35MG DEC1987-NOV 1988.
     Dates: start: 19821215, end: 19881115

REACTIONS (10)
  - BONE CYST [None]
  - BONE DISORDER [None]
  - EPISTAXIS [None]
  - INTERVERTEBRAL DISC DISORDER [None]
  - LIGAMENT CALCIFICATION [None]
  - OSTEOARTHRITIS [None]
  - SCOLIOSIS [None]
  - SPONDYLOSIS [None]
  - TACHYCARDIA [None]
  - VENTRICULAR EXTRASYSTOLES [None]
